FAERS Safety Report 25477751 (Version 1)
Quarter: 2025Q2

REPORT INFORMATION
  Report Type: Spontaneous
  Country: DE (occurrence: DE)
  Receive Date: 20250625
  Receipt Date: 20250625
  Transmission Date: 20250717
  Serious: Yes (Hospitalization, Other)
  Sender: HIKMA
  Company Number: None

PATIENT
  Age: 82 Year
  Sex: Female
  Weight: 56 kg

DRUGS (49)
  1. AMIODARONE [Suspect]
     Active Substance: AMIODARONE
     Indication: Product used for unknown indication
     Route: 065
  2. CLOPIDOGREL BISULFATE [Suspect]
     Active Substance: CLOPIDOGREL BISULFATE
     Indication: Product used for unknown indication
     Route: 048
     Dates: start: 20170124, end: 20170124
  3. ASPIRIN [Suspect]
     Active Substance: ASPIRIN
     Indication: Product used for unknown indication
     Route: 065
  4. LACTULOSE [Suspect]
     Active Substance: LACTULOSE
     Indication: Product used for unknown indication
     Route: 065
     Dates: start: 20170124, end: 20170124
  5. BISOPROLOL FUMARATE [Suspect]
     Active Substance: BISOPROLOL FUMARATE
     Indication: Product used for unknown indication
     Dosage: 0.5 MG, QD
     Route: 065
     Dates: start: 2016
  6. BISOPROLOL FUMARATE [Suspect]
     Active Substance: BISOPROLOL FUMARATE
     Dosage: 5 MG, QD
     Route: 065
     Dates: start: 2016
  7. TROSPIUM CHLORIDE [Suspect]
     Active Substance: TROSPIUM CHLORIDE
     Dosage: 15 MILLIGRAM, QD
     Route: 065
     Dates: start: 20170124
  8. TROSPIUM CHLORIDE [Suspect]
     Active Substance: TROSPIUM CHLORIDE
     Indication: Product used for unknown indication
     Route: 065
     Dates: start: 20170124
  9. CHOLECALCIFEROL [Suspect]
     Active Substance: CHOLECALCIFEROL
     Indication: Product used for unknown indication
     Dosage: 20000 INTERNATIONAL UNIT, WEEKLY
     Route: 065
  10. DICLOFENAC SODIUM [Suspect]
     Active Substance: DICLOFENAC SODIUM
     Indication: Product used for unknown indication
     Dosage: 2 DOSAGE FORM, QD
     Route: 065
     Dates: start: 201610, end: 201610
  11. FENTANYL [Suspect]
     Active Substance: FENTANYL
     Indication: Product used for unknown indication
     Dosage: 75 MICROGRAM, QH
     Route: 062
  12. HUMIRA [Suspect]
     Active Substance: ADALIMUMAB
     Indication: Rheumatoid arthritis
     Dosage: 40 MILLIGRAM, WEEKLY
     Route: 058
     Dates: start: 20120411, end: 20160927
  13. HUMIRA [Suspect]
     Active Substance: ADALIMUMAB
     Dosage: 1 DOSAGE FORM, BIW
     Route: 058
     Dates: start: 20161115
  14. HUMIRA [Suspect]
     Active Substance: ADALIMUMAB
     Dosage: 1 DOSAGE FORM, Q2W
     Route: 058
     Dates: start: 20160927
  15. HUMIRA [Suspect]
     Active Substance: ADALIMUMAB
     Dosage: 2 DOSAGE FORM, BIW
     Route: 058
     Dates: start: 20120111, end: 20160927
  16. HUMIRA [Suspect]
     Active Substance: ADALIMUMAB
     Dosage: 40 MG, QW
     Route: 058
     Dates: start: 20120111
  17. HUMIRA [Suspect]
     Active Substance: ADALIMUMAB
     Dosage: 40 MG, QW
     Route: 058
     Dates: start: 20161115
  18. HUMIRA [Suspect]
     Active Substance: ADALIMUMAB
     Dosage: 40 MG, Q2W
     Route: 058
     Dates: start: 20120411, end: 20160927
  19. HUMIRA [Suspect]
     Active Substance: ADALIMUMAB
     Route: 058
     Dates: start: 20161115
  20. HYDROCHLOROTHIAZIDE [Suspect]
     Active Substance: HYDROCHLOROTHIAZIDE
     Indication: Product used for unknown indication
     Dosage: 1 DOSAGE FORM, QD
     Route: 065
     Dates: start: 2016
  21. EDOXABAN TOSYLATE [Suspect]
     Active Substance: EDOXABAN TOSYLATE
     Indication: Atrial fibrillation
     Dosage: 30 MILLIGRAM, QD
     Route: 065
     Dates: start: 20160930
  22. LOSARTAN [Suspect]
     Active Substance: LOSARTAN
     Indication: Product used for unknown indication
     Dosage: 1 DOSAGE FORM, QD
     Route: 065
     Dates: start: 2016
  23. LOSARTAN POTASSIUM [Suspect]
     Active Substance: LOSARTAN POTASSIUM
     Indication: Product used for unknown indication
     Dosage: 1 DOSAGE FORM, QD
     Route: 065
     Dates: start: 2016
  24. METOPROLOL SUCCINATE [Suspect]
     Active Substance: METOPROLOL SUCCINATE
     Indication: Product used for unknown indication
     Route: 065
     Dates: start: 20170124, end: 20170124
  25. MOVICOL [Suspect]
     Active Substance: POLYETHYLENE GLYCOL 3350\POTASSIUM CHLORIDE\SODIUM BICARBONATE\SODIUM CHLORIDE
     Indication: Product used for unknown indication
     Route: 065
     Dates: start: 20170124
  26. PANTOPRAZOLE [Suspect]
     Active Substance: PANTOPRAZOLE
     Dosage: 20 MG, QD
     Route: 065
  27. PANTOPRAZOLE [Suspect]
     Active Substance: PANTOPRAZOLE
     Indication: Product used for unknown indication
     Route: 065
  28. PREDNISOLONE [Suspect]
     Active Substance: PREDNISOLONE
     Indication: Product used for unknown indication
     Route: 065
  29. SIMVASTATIN [Suspect]
     Active Substance: SIMVASTATIN
     Indication: Product used for unknown indication
     Route: 065
  30. PHLOROGLUCINOL [Suspect]
     Active Substance: PHLOROGLUCINOL
     Route: 065
  31. PHLOROGLUCINOL [Suspect]
     Active Substance: PHLOROGLUCINOL
     Dosage: 15 MG, QD
     Route: 065
     Dates: start: 20170124, end: 20170124
  32. PHLOROGLUCINOL [Suspect]
     Active Substance: PHLOROGLUCINOL
     Indication: Product used for unknown indication
     Dosage: 45 MILLIGRAM, QD
     Route: 065
     Dates: start: 20170124, end: 20170124
  33. FUROSEMIDE\SPIRONOLACTONE [Suspect]
     Active Substance: FUROSEMIDE\SPIRONOLACTONE
     Indication: Product used for unknown indication
     Dosage: 1 DF, QD, 1X/DAY, 50MG/20MG
     Route: 065
     Dates: start: 201610, end: 201610
  34. TORSEMIDE [Suspect]
     Active Substance: TORSEMIDE
     Dosage: 15 MILLIGRAM, QD
     Route: 065
  35. TORSEMIDE [Suspect]
     Active Substance: TORSEMIDE
     Indication: Product used for unknown indication
     Dosage: 45 MILLIGRAM, QD
     Route: 065
     Dates: start: 20170124, end: 20170124
  36. TORSEMIDE [Suspect]
     Active Substance: TORSEMIDE
     Indication: Product used for unknown indication
     Dosage: 5 MILLIGRAM, QD
     Route: 065
     Dates: start: 20170124, end: 20170124
  37. VALSARTAN [Suspect]
     Active Substance: VALSARTAN
     Indication: Product used for unknown indication
     Route: 065
  38. DICLOFENAC [Suspect]
     Active Substance: DICLOFENAC
     Indication: Product used for unknown indication
     Dosage: 2 DOSAGE FORM, QD
     Route: 065
     Dates: start: 201610, end: 201610
  39. XIPAMIDE [Suspect]
     Active Substance: XIPAMIDE
     Indication: Product used for unknown indication
     Route: 065
     Dates: start: 20170124, end: 20170124
  40. CORDAREX [Concomitant]
     Active Substance: AMIODARONE
     Indication: Product used for unknown indication
     Dosage: 200 MG, QD
     Route: 065
  41. ENOXAPARIN [Concomitant]
     Active Substance: ENOXAPARIN
     Dosage: 0.6 MILLIGRAM, QD
     Route: 065
  42. ENOXAPARIN [Concomitant]
     Active Substance: ENOXAPARIN
     Indication: Product used for unknown indication
     Dosage: 5 MG, QD
     Route: 065
     Dates: start: 2016
  43. FOLIC ACID [Concomitant]
     Active Substance: FOLIC ACID
     Indication: Product used for unknown indication
     Route: 065
     Dates: start: 20170124
  44. NADROPARIN CALCIUM [Concomitant]
     Active Substance: NADROPARIN CALCIUM
     Indication: Product used for unknown indication
     Dosage: 5700 INTERNATIONAL UNIT, QD
     Route: 058
  45. LEVOSIMENDAN [Concomitant]
     Active Substance: LEVOSIMENDAN
     Indication: Product used for unknown indication
     Route: 065
     Dates: start: 201611, end: 201611
  46. MAGALDRATE [Concomitant]
     Active Substance: MAGALDRATE
     Indication: Product used for unknown indication
     Dosage: 1600 MILLIGRAM, QD
     Route: 048
  47. MAGALDRATE [Concomitant]
     Active Substance: MAGALDRATE
     Dosage: 4800 MILLIGRAM, QD
     Route: 048
  48. SODIUM CHLORIDE [Concomitant]
     Active Substance: SODIUM CHLORIDE
     Indication: Product used for unknown indication
     Dosage: 1 DOSAGE FORM, QD
     Route: 065
  49. SODIUM CHLORIDE [Concomitant]
     Active Substance: SODIUM CHLORIDE
     Dosage: 3 DOSAGE FORM, QD
     Route: 065

REACTIONS (54)
  - Joint dislocation [Recovered/Resolved]
  - Groin pain [Not Recovered/Not Resolved]
  - Oedema peripheral [Unknown]
  - Haematuria [Recovering/Resolving]
  - Escherichia infection [Unknown]
  - Eructation [Unknown]
  - Diverticulum intestinal [Recovering/Resolving]
  - Fall [Unknown]
  - Gait disturbance [Unknown]
  - Faecaloma [Unknown]
  - Gastrointestinal haemorrhage [Recovered/Resolved]
  - Mitral valve incompetence [Unknown]
  - Anuria [Recovered/Resolved]
  - Dyspnoea [Unknown]
  - Postoperative wound infection [Recovered/Resolved]
  - Tachyarrhythmia [Unknown]
  - Haemarthrosis [Unknown]
  - Aortic valve stenosis [Unknown]
  - General physical health deterioration [Unknown]
  - Cardiovascular disorder [Unknown]
  - Hepatic cyst [Unknown]
  - Aplastic anaemia [Unknown]
  - Pancreatic steatosis [Unknown]
  - Dyspepsia [Unknown]
  - Anaemia [Recovered/Resolved]
  - Acute kidney injury [Unknown]
  - Abdominal discomfort [Unknown]
  - Decreased appetite [Unknown]
  - Syncope [Unknown]
  - Femoral hernia incarcerated [Recovered/Resolved]
  - Coronary artery disease [Unknown]
  - Hyponatraemia [Unknown]
  - Lymphatic fistula [Recovered/Resolved]
  - Left ventricular dysfunction [Recovered/Resolved]
  - Urinary retention [Unknown]
  - Wound dehiscence [Recovered/Resolved]
  - Vomiting [Unknown]
  - Osteopenia [Unknown]
  - Aortic arteriosclerosis [Unknown]
  - Urinary tract infection [Recovering/Resolving]
  - Tricuspid valve incompetence [Unknown]
  - Peripheral swelling [Recovered/Resolved]
  - Myocardial infarction [Recovered/Resolved]
  - Impaired healing [Recovered/Resolved]
  - Inflammatory marker increased [Recovered/Resolved]
  - Hyperkalaemia [Unknown]
  - Arterial haemorrhage [Recovered/Resolved]
  - Arthralgia [Unknown]
  - Seroma [Unknown]
  - Wound infection pseudomonas [Recovering/Resolving]
  - Pulmonary hypertension [Recovering/Resolving]
  - Cardiogenic shock [Unknown]
  - Myelodysplastic syndrome [Unknown]
  - Hiatus hernia [Unknown]

NARRATIVE: CASE EVENT DATE: 20160101
